FAERS Safety Report 22145478 (Version 13)
Quarter: 2025Q1

REPORT INFORMATION
  Report Type: Spontaneous
  Country: US (occurrence: US)
  Receive Date: 20230328
  Receipt Date: 20250203
  Transmission Date: 20250409
  Serious: No
  Sender: BIOGEN
  Company Number: US-BIOGEN-2023BI01193445

PATIENT
  Sex: Female

DRUGS (16)
  1. VUMERITY [Suspect]
     Active Substance: DIROXIMEL FUMARATE
     Indication: Multiple sclerosis
     Dosage: 231 MILLIGRAM
     Route: 050
     Dates: start: 20230302
  2. VUMERITY [Suspect]
     Active Substance: DIROXIMEL FUMARATE
     Route: 050
     Dates: start: 20230303, end: 20230309
  3. VUMERITY [Suspect]
     Active Substance: DIROXIMEL FUMARATE
     Route: 050
     Dates: start: 20230310
  4. AMPYRA [Suspect]
     Active Substance: DALFAMPRIDINE
     Indication: Product used for unknown indication
     Route: 050
  5. METRONIDAZOLE [Concomitant]
     Active Substance: METRONIDAZOLE
     Route: 050
  6. BACLOFEN [Concomitant]
     Active Substance: BACLOFEN
     Route: 050
  7. MIRENA [Concomitant]
     Active Substance: LEVONORGESTREL
     Route: 050
  8. ASPIRIN [Concomitant]
     Active Substance: ASPIRIN
     Route: 050
  9. HERBALS\TURMERIC [Concomitant]
     Active Substance: HERBALS\TURMERIC
     Route: 050
  10. PROBIOTICS NOS [Concomitant]
     Active Substance: PROBIOTICS NOS
     Route: 050
  11. COLLAGENASE [Concomitant]
     Active Substance: COLLAGENASE CLOSTRIDIUM HISTOLYTICUM
     Route: 050
  12. MAGNESIUM [Concomitant]
     Active Substance: MAGNESIUM
     Route: 050
  13. BIOTIN [Concomitant]
     Active Substance: BIOTIN
     Route: 050
  14. QC WOMENS DAILY MULTIVITAMIN [Concomitant]
     Route: 050
  15. ZYRTEC [Concomitant]
     Active Substance: CETIRIZINE HYDROCHLORIDE
     Route: 050
  16. MIRALAX [Concomitant]
     Active Substance: POLYETHYLENE GLYCOL 3350
     Route: 050

REACTIONS (21)
  - Underdose [Unknown]
  - Peroneal nerve palsy [Not Recovered/Not Resolved]
  - Weight increased [Unknown]
  - Back pain [Unknown]
  - Dizziness [Unknown]
  - Abdominal discomfort [Unknown]
  - Pain [Unknown]
  - Feeling abnormal [Unknown]
  - Multiple allergies [Unknown]
  - Sinus headache [Unknown]
  - Muscular weakness [Unknown]
  - Musculoskeletal stiffness [Unknown]
  - Dry skin [Unknown]
  - Dysphonia [Unknown]
  - Exercise tolerance decreased [Unknown]
  - Gait disturbance [Unknown]
  - Vitamin D decreased [Unknown]
  - Vision blurred [Recovered/Resolved]
  - Abdominal pain upper [Unknown]
  - Flushing [Unknown]
  - Feeling hot [Recovered/Resolved]

NARRATIVE: CASE EVENT DATE: 20230101
